FAERS Safety Report 20168692 (Version 1)
Quarter: 2021Q4

REPORT INFORMATION
  Report Type: Other
  Country: US (occurrence: None)
  Receive Date: 20211210
  Receipt Date: 20211210
  Transmission Date: 20220303
  Serious: Yes (Hospitalization)
  Sender: FDA-Public Use
  Company Number: US-ROCHE-2975820

PATIENT
  Sex: Female

DRUGS (26)
  1. ESBRIET [Suspect]
     Active Substance: PIRFENIDONE
     Indication: Anaemia
     Dosage: TAKE 3 TABLET(S) BY MOUTH 3 TIMES A DAY
     Route: 048
  2. ESBRIET [Suspect]
     Active Substance: PIRFENIDONE
     Indication: Asthma
  3. ESBRIET [Suspect]
     Active Substance: PIRFENIDONE
     Indication: Arteriosclerosis coronary artery
  4. ESBRIET [Suspect]
     Active Substance: PIRFENIDONE
     Indication: Arteriosclerosis coronary artery
  5. ESBRIET [Suspect]
     Active Substance: PIRFENIDONE
     Indication: Atrial fibrillation
  6. ESBRIET [Suspect]
     Active Substance: PIRFENIDONE
     Indication: Bronchiectasis
  7. ESBRIET [Suspect]
     Active Substance: PIRFENIDONE
     Indication: Colon cancer stage 0
  8. ESBRIET [Suspect]
     Active Substance: PIRFENIDONE
     Indication: Chronic obstructive pulmonary disease
  9. ESBRIET [Suspect]
     Active Substance: PIRFENIDONE
     Indication: Epistaxis
  10. ESBRIET [Suspect]
     Active Substance: PIRFENIDONE
     Indication: Essential hypertension
  11. ESBRIET [Suspect]
     Active Substance: PIRFENIDONE
     Indication: Interstitial lung disease
  12. ESBRIET [Suspect]
     Active Substance: PIRFENIDONE
     Indication: Pulmonary fibrosis
  13. ESBRIET [Suspect]
     Active Substance: PIRFENIDONE
     Indication: Anticoagulant therapy
  14. ESBRIET [Suspect]
     Active Substance: PIRFENIDONE
     Indication: Bone density abnormal
  15. ESBRIET [Suspect]
     Active Substance: PIRFENIDONE
     Indication: Hyperlipidaemia
  16. ESBRIET [Suspect]
     Active Substance: PIRFENIDONE
     Indication: Polyneuropathy
  17. ESBRIET [Suspect]
     Active Substance: PIRFENIDONE
     Indication: Chest pain
  18. ESBRIET [Suspect]
     Active Substance: PIRFENIDONE
     Indication: Pulmonary hypertension
  19. ESBRIET [Suspect]
     Active Substance: PIRFENIDONE
     Indication: Raynaud^s phenomenon
  20. ESBRIET [Suspect]
     Active Substance: PIRFENIDONE
     Indication: Arthralgia
  21. ESBRIET [Suspect]
     Active Substance: PIRFENIDONE
     Indication: Idiopathic pulmonary fibrosis
  22. ESBRIET [Suspect]
     Active Substance: PIRFENIDONE
     Indication: Urinary tract infection
  23. ESBRIET [Suspect]
     Active Substance: PIRFENIDONE
     Indication: Chronic respiratory failure
  24. SPIRIVA [Concomitant]
     Active Substance: TIOTROPIUM BROMIDE MONOHYDRATE
  25. WARFARIN [Concomitant]
     Active Substance: WARFARIN
  26. ASPIRIN [Concomitant]
     Active Substance: ASPIRIN

REACTIONS (2)
  - Fall [Unknown]
  - Ankle fracture [Unknown]
